FAERS Safety Report 6378997-2 (Version None)
Quarter: 2009Q3

REPORT INFORMATION
  Report Type: 
  Country: None (occurrence: None)
  Receive Date: 20090928
  Receipt Date: 20090918
  Transmission Date: 20100115
  Serious: Yes (Other)
  Sender: FDA-Public Use
  Company Number: PHHY2009NL40297

PATIENT
  Sex: Female

DRUGS (1)
  1. TEGRETOL-XR [Suspect]
     Dosage: 400+400+200 MG

REACTIONS (4)
  - BLINDNESS TRANSIENT [None]
  - DIPLOPIA [None]
  - DIZZINESS [None]
  - DRUG LEVEL INCREASED [None]
